FAERS Safety Report 12351691 (Version 1)
Quarter: 2016Q2

REPORT INFORMATION
  Report Type: Spontaneous
  Country: US (occurrence: US)
  Receive Date: 20160510
  Receipt Date: 20160510
  Transmission Date: 20160815
  Serious: Yes (Other)
  Sender: FDA-Public Use
  Company Number: US-SA-2016SA087713

PATIENT
  Age: 97 Year
  Sex: Female

DRUGS (2)
  1. MULTAQ [Suspect]
     Active Substance: DRONEDARONE
     Indication: ATRIAL FIBRILLATION
     Route: 065
  2. MULTAQ [Suspect]
     Active Substance: DRONEDARONE
     Indication: ATRIAL FIBRILLATION
     Route: 065
     Dates: end: 20160426

REACTIONS (5)
  - Muscle twitching [Recovered/Resolved]
  - Oedema [Unknown]
  - Bronchitis [Unknown]
  - Pulmonary oedema [Unknown]
  - Cardiac failure [Recovering/Resolving]
